FAERS Safety Report 24615566 (Version 2)
Quarter: 2025Q3

REPORT INFORMATION
  Report Type: Spontaneous
  Country: US (occurrence: US)
  Receive Date: 20241113
  Receipt Date: 20250730
  Transmission Date: 20251020
  Serious: No
  Sender: SANOFI AVENTIS
  Company Number: US-SA-2024SA325135

PATIENT
  Sex: Male
  Weight: 84.09 kg

DRUGS (13)
  1. DUPIXENT [Suspect]
     Active Substance: DUPILUMAB
     Indication: Dermatitis atopic
     Route: 058
  2. DUPIXENT [Suspect]
     Active Substance: DUPILUMAB
     Dosage: 300 MG, QOW
     Route: 058
  3. ASPIRIN [Concomitant]
     Active Substance: ASPIRIN
  4. MYRBETRIQ [Concomitant]
     Active Substance: MIRABEGRON
  5. LORATADINE [Concomitant]
     Active Substance: LORATADINE
  6. LISINOPRIL [Concomitant]
     Active Substance: LISINOPRIL
  7. DOXYCYCLINE HYCLATE [Concomitant]
     Active Substance: DOXYCYCLINE HYCLATE
  8. OMEPRAZOLE [Concomitant]
     Active Substance: OMEPRAZOLE
  9. VITAMIN D [Concomitant]
     Active Substance: VITAMIN D NOS
  10. ALBUTEROL SULFATE [Concomitant]
     Active Substance: ALBUTEROL SULFATE
  11. AZELAIC ACID [Concomitant]
     Active Substance: AZELAIC ACID
  12. VITAMIN C [Concomitant]
     Active Substance: ASCORBIC ACID
  13. SOOLANTRA [Concomitant]
     Active Substance: IVERMECTIN

REACTIONS (1)
  - Rash [Unknown]
